FAERS Safety Report 25267926 (Version 1)
Quarter: 2025Q2

REPORT INFORMATION
  Report Type: Spontaneous
  Country: BE (occurrence: BE)
  Receive Date: 20250505
  Receipt Date: 20250505
  Transmission Date: 20250716
  Serious: Yes (Life-Threatening, Other)
  Sender: UNICHEM
  Company Number: BE-UNICHEM LABORATORIES LIMITED-UNI-2025-BE-002100

PATIENT

DRUGS (2)
  1. AMIODARONE [Interacting]
     Active Substance: AMIODARONE
     Indication: Atrial fibrillation
     Route: 065
  2. RIVAROXABAN [Interacting]
     Active Substance: RIVAROXABAN
     Indication: Atrial fibrillation
     Route: 065

REACTIONS (3)
  - Drug interaction [Unknown]
  - Gastrointestinal haemorrhage [Unknown]
  - Shock [Unknown]
